FAERS Safety Report 7206055-3 (Version None)
Quarter: 2010Q4

REPORT INFORMATION
  Report Type: 
  Country: None (occurrence: None)
  Receive Date: 20101229
  Receipt Date: 20101229
  Transmission Date: 20110411
  Serious: Yes (Life-Threatening, Hospitalization, Other)
  Sender: FDA-Public Use
  Company Number: None

PATIENT
  Sex: Male
  Weight: 76.2043 kg

DRUGS (2)
  1. MUCINEX DM [Suspect]
     Indication: COUGH
     Dosage: 2 TABLETS
     Dates: start: 20101211
  2. MUCINEX DM [Suspect]
     Indication: NASOPHARYNGITIS
     Dosage: 2 TABLETS
     Dates: start: 20101211

REACTIONS (1)
  - ADVERSE EVENT [None]
